FAERS Safety Report 5836688-8 (Version None)
Quarter: 2008Q3

REPORT INFORMATION
  Report Type: 
  Country: None (occurrence: None)
  Receive Date: 20080807
  Receipt Date: 20080728
  Transmission Date: 20090109
  Serious: No
  Sender: FDA-Public Use
  Company Number: GB-JNJFOC-20080505370

PATIENT
  Sex: Male

DRUGS (2)
  1. CONCERTA [Suspect]
     Dosage: 36MG AND 18MG EVERY MORNING
     Route: 048
  2. CONCERTA [Suspect]
     Indication: DRUG USE FOR UNKNOWN INDICATION
     Route: 048

REACTIONS (3)
  - EPISTAXIS [None]
  - RETCHING [None]
  - TREMOR [None]
